FAERS Safety Report 5181662-0 (Version None)
Quarter: 2006Q4

REPORT INFORMATION
  Report Type: 
  Country: None (occurrence: None)
  Receive Date: 20061220
  Receipt Date: 20060220
  Transmission Date: 20070319
  Serious: No
  Sender: FDA-Public Use
  Company Number: US-GLAXOSMITHKLINE-A0594374A

PATIENT
  Age: 64 Year
  Sex: Female

DRUGS (1)
  1. COMMIT [Suspect]
     Dates: start: 20060212, end: 20060214

REACTIONS (3)
  - THERMAL BURN [None]
  - TONGUE BLISTERING [None]
  - TONGUE DISORDER [None]
